FAERS Safety Report 11406121 (Version 1)
Quarter: 2015Q3

REPORT INFORMATION
  Report Type: Spontaneous
  Country: JP (occurrence: JP)
  Receive Date: 20150821
  Receipt Date: 20150821
  Transmission Date: 20151125
  Serious: Yes (Disabling)
  Sender: FDA-Public Use
  Company Number: JP-GE HEALTHCARE MEDICAL DIAGNOSTICS-OMPQ-PR-1506S-0996

PATIENT
  Age: 72 Year
  Sex: Male
  Weight: 72 kg

DRUGS (10)
  1. LANTUS [Concomitant]
     Active Substance: INSULIN GLARGINE
  2. AMLODIPINE [Concomitant]
     Active Substance: AMLODIPINE BESYLATE
  3. OMNIPAQUE [Suspect]
     Active Substance: IOHEXOL
     Indication: DIAGNOSTIC PROCEDURE
  4. ARTIST [Concomitant]
     Active Substance: CARVEDILOL
  5. METGLUCO [Concomitant]
     Active Substance: METFORMIN HYDROCHLORIDE
  6. OMNIPAQUE [Suspect]
     Active Substance: IOHEXOL
     Indication: HEPATOCELLULAR CARCINOMA
     Route: 042
     Dates: start: 20150313, end: 20150313
  7. BAYASPIRIN [Concomitant]
     Active Substance: ASPIRIN
  8. PIOGLITAZONE. [Concomitant]
     Active Substance: PIOGLITAZONE
  9. LIVALO [Concomitant]
     Active Substance: PITAVASTATIN CALCIUM
  10. BLOPRESS [Concomitant]
     Active Substance: CANDESARTAN CILEXETIL

REACTIONS (2)
  - Postresuscitation encephalopathy [Unknown]
  - Anaphylactic shock [Recovered/Resolved with Sequelae]

NARRATIVE: CASE EVENT DATE: 20150313
